FAERS Safety Report 9345936 (Version 1)
Quarter: 2013Q2

REPORT INFORMATION
  Report Type: Spontaneous
  Country: US (occurrence: US)
  Receive Date: 20130613
  Receipt Date: 20130613
  Transmission Date: 20140414
  Serious: No
  Sender: FDA-Public Use
  Company Number: US-BAYER-2013-071583

PATIENT
  Age: 43 Year
  Sex: Female
  Weight: 79 kg

DRUGS (9)
  1. ESTRADIOL HEMIHYDRATE (PATCH) [Suspect]
     Indication: HORMONE REPLACEMENT THERAPY
     Dosage: 0.1MG/DAY
     Route: 062
     Dates: start: 201207
  2. TOPAMAX [Concomitant]
     Indication: EPILEPSY
     Dosage: 50 MG, BID
     Route: 048
     Dates: start: 201303
  3. TOPAMAX [Concomitant]
     Indication: MIGRAINE
  4. ZOLOFT [Concomitant]
     Indication: DEPRESSION
     Dosage: 100 MG, BID
     Route: 048
     Dates: start: 199811
  5. GLUCOPHAGE [Concomitant]
     Indication: DIABETES MELLITUS
     Dosage: UNK UNK, BID
     Route: 048
     Dates: start: 201211
  6. ZYRTEC [Concomitant]
     Indication: MULTIPLE ALLERGIES
     Dosage: 10 MG, QD
     Route: 048
     Dates: start: 201004
  7. RELPAX [Concomitant]
     Indication: MIGRAINE
     Dosage: OCCASIONALLY
     Route: 048
     Dates: start: 200701
  8. LORTAB [Concomitant]
     Indication: MIGRAINE
     Dosage: 5 MG OCCASIONALLY
     Route: 048
     Dates: start: 201101
  9. ADVIL [Concomitant]
     Indication: MIGRAINE
     Dosage: 200 MG, PRN OCCASIONALLY
     Route: 048
     Dates: start: 198701

REACTIONS (3)
  - Drug ineffective [Not Recovered/Not Resolved]
  - Hot flush [Not Recovered/Not Resolved]
  - Irritability [Not Recovered/Not Resolved]
